FAERS Safety Report 23532322 (Version 1)
Quarter: 2024Q1

REPORT INFORMATION
  Report Type: Spontaneous
  Country: JP (occurrence: JP)
  Receive Date: 20240216
  Receipt Date: 20240216
  Transmission Date: 20240410
  Serious: Yes (Other)
  Sender: FDA-Public Use
  Company Number: JP-Merck Healthcare KGaA-2024008140

PATIENT
  Sex: Female

DRUGS (1)
  1. METGLUCO [Suspect]
     Active Substance: METFORMIN HYDROCHLORIDE
     Indication: Product used for unknown indication
     Route: 048
     Dates: start: 20230803, end: 20231228

REACTIONS (4)
  - Ophthalmoplegia [Not Recovered/Not Resolved]
  - Muscle tightness [Unknown]
  - Musculoskeletal stiffness [Unknown]
  - Eye pain [Unknown]

NARRATIVE: CASE EVENT DATE: 20231001
